FAERS Safety Report 8997037 (Version 2)
Quarter: 2013Q1

REPORT INFORMATION
  Report Type: Spontaneous
  Country: CA (occurrence: CA)
  Receive Date: 20130104
  Receipt Date: 20130122
  Transmission Date: 20140127
  Serious: Yes (Other)
  Sender: FDA-Public Use
  Company Number: CA-PFIZER INC-2013002330

PATIENT
  Age: 53 Year
  Sex: Male

DRUGS (7)
  1. ZITHROMAX [Suspect]
     Indication: RESPIRATORY TRACT INFLAMMATION
     Dosage: 500 MG, SINGLE
     Dates: start: 20121223, end: 20121223
  2. ZITHROMAX [Suspect]
     Indication: PHARYNGEAL INFLAMMATION
     Dosage: 250 MG, UNK
     Dates: start: 20121224, end: 20121227
  3. SEROQUEL [Concomitant]
     Dosage: UNK
  4. LITHIUM [Concomitant]
     Dosage: UNK
  5. DIVALPROEX [Concomitant]
     Dosage: UNK
  6. WELLBUTRIN [Concomitant]
     Dosage: UNK
  7. CLONAZEPAM [Concomitant]
     Dosage: UNK

REACTIONS (7)
  - Hallucination [Recovered/Resolved]
  - Agitation [Recovered/Resolved]
  - Restlessness [Recovered/Resolved]
  - Asthenia [Recovered/Resolved]
  - Dysarthria [Recovered/Resolved]
  - Disorientation [Recovered/Resolved]
  - Malaise [Recovered/Resolved]
